FAERS Safety Report 20568343 (Version 1)
Quarter: 2022Q1

REPORT INFORMATION
  Report Type: Spontaneous
  Country: DE (occurrence: None)
  Receive Date: 20220308
  Receipt Date: 20220308
  Transmission Date: 20220423
  Serious: Yes (Other)
  Sender: FDA-Public Use
  Company Number: DE-ELI_LILLY_AND_COMPANY-DE202202004619

PATIENT
  Sex: Male

DRUGS (2)
  1. PACLITAXEL [Suspect]
     Active Substance: PACLITAXEL
     Indication: Gastrointestinal carcinoma
     Dosage: UNK UNK, UNKNOWN
     Route: 065
  2. RAMUCIRUMAB [Suspect]
     Active Substance: RAMUCIRUMAB
     Indication: Gastrointestinal carcinoma
     Dosage: UNK UNK, UNKNOWN
     Route: 042

REACTIONS (1)
  - Gastrointestinal haemorrhage [Not Recovered/Not Resolved]
